FAERS Safety Report 25594273 (Version 4)
Quarter: 2025Q3

REPORT INFORMATION
  Report Type: Spontaneous
  Country: US (occurrence: US)
  Receive Date: 20250723
  Receipt Date: 20250828
  Transmission Date: 20251021
  Serious: Yes (Other)
  Sender: KARYOPHARM THERAPEUTICS
  Company Number: US-KARYOPHARM-2025KPT100519

PATIENT

DRUGS (23)
  1. SELINEXOR [Suspect]
     Active Substance: SELINEXOR
     Indication: Plasma cell myeloma
     Route: 048
     Dates: start: 20250720, end: 2025
  2. SELINEXOR [Suspect]
     Active Substance: SELINEXOR
     Dates: start: 20250817, end: 202508
  3. ACYCLOVIR [Concomitant]
     Active Substance: ACYCLOVIR
  4. ALBUTEROL SULFATE [Concomitant]
     Active Substance: ALBUTEROL SULFATE
  5. AMBIEN [Concomitant]
     Active Substance: ZOLPIDEM TARTRATE
  6. AMLODIPINE BESYLATE [Concomitant]
     Active Substance: AMLODIPINE BESYLATE
  7. BACTRIM DS [Concomitant]
     Active Substance: SULFAMETHOXAZOLE\TRIMETHOPRIM
  8. CLONIDINE HYDROCHLORIDE [Concomitant]
     Active Substance: CLONIDINE HYDROCHLORIDE
  9. CYCLOBENZAPRINE HYDROCHLORIDE [Concomitant]
     Active Substance: CYCLOBENZAPRINE HYDROCHLORIDE
  10. DARZALEX FASPRO [Concomitant]
     Active Substance: DARATUMUMAB\HYALURONIDASE-FIHJ
  11. GABAPENTIN [Concomitant]
     Active Substance: GABAPENTIN
  12. HEPARIN [Concomitant]
     Active Substance: HEPARIN SODIUM
  13. HYDROMORPHONE HCL [Concomitant]
     Active Substance: HYDROMORPHONE HYDROCHLORIDE
  14. ALBUTEROL\IPRATROPIUM [Concomitant]
     Active Substance: ALBUTEROL\IPRATROPIUM
  15. JARDIANCE [Concomitant]
     Active Substance: EMPAGLIFLOZIN
  16. LACTULOSE [Concomitant]
     Active Substance: LACTULOSE
  17. LEVEMIR [Concomitant]
     Active Substance: INSULIN DETEMIR
  18. MORPHINE SULFATE [Concomitant]
     Active Substance: MORPHINE SULFATE
  19. ONDANSETRON [Concomitant]
     Active Substance: ONDANSETRON
  20. PANTOPRAZOLE SODIUM [Concomitant]
     Active Substance: PANTOPRAZOLE SODIUM
  21. ROSUVASTATIN CALCIUM [Concomitant]
     Active Substance: ROSUVASTATIN CALCIUM
  22. TRULICITY [Concomitant]
     Active Substance: DULAGLUTIDE
  23. VASCEPA [Concomitant]
     Active Substance: ICOSAPENT ETHYL

REACTIONS (7)
  - Upper limb fracture [Unknown]
  - Dry mouth [Unknown]
  - White blood cell count decreased [Unknown]
  - Fatigue [Unknown]
  - Weight decreased [Recovering/Resolving]
  - Decreased appetite [Unknown]
  - Vomiting [Recovering/Resolving]

NARRATIVE: CASE EVENT DATE: 20250101
